FAERS Safety Report 10361718 (Version 1)
Quarter: 2014Q3

REPORT INFORMATION
  Report Type: Spontaneous
  Country: FR (occurrence: FR)
  Receive Date: 20140805
  Receipt Date: 20140805
  Transmission Date: 20150326
  Serious: Yes (Hospitalization)
  Sender: FDA-Public Use
  Company Number: FR-ASTRAZENECA-2014SE55759

PATIENT
  Age: 29373 Day
  Sex: Female

DRUGS (5)
  1. XEROQUEL [Suspect]
     Active Substance: QUETIAPINE FUMARATE
     Route: 048
  2. SERESTA [Suspect]
     Active Substance: OXAZEPAM
     Dosage: 25 MG, ONE TO THREE TIMES PER DAY AS REQUIRED
     Route: 048
  3. SERESTA [Suspect]
     Active Substance: OXAZEPAM
     Route: 048
     Dates: start: 20140409
  4. XEROQUEL [Suspect]
     Active Substance: QUETIAPINE FUMARATE
     Route: 048
     Dates: start: 20140409
  5. LAMICTAL [Concomitant]
     Active Substance: LAMOTRIGINE
     Route: 048

REACTIONS (4)
  - Bradycardia [Recovered/Resolved]
  - Hypotension [Recovered/Resolved]
  - Poisoning [Unknown]
  - Respiratory alkalosis [Unknown]

NARRATIVE: CASE EVENT DATE: 20140409
